FAERS Safety Report 5043713-3 (Version None)
Quarter: 2006Q2

REPORT INFORMATION
  Report Type: 
  Country: None (occurrence: None)
  Receive Date: 20060601
  Receipt Date: 20060127
  Transmission Date: 20061013
  Serious: No
  Sender: FDA-Public Use
  Company Number: 2006PV007731

PATIENT
  Age: 63 Year
  Sex: Female
  Weight: 99.7913 kg

DRUGS (5)
  1. BYETTA [Suspect]
     Indication: DIABETES MELLITUS NON-INSULIN-DEPENDENT
     Dosage: SEE IMAGE
     Route: 058
     Dates: start: 20051223, end: 20060122
  2. BYETTA [Suspect]
     Indication: DIABETES MELLITUS NON-INSULIN-DEPENDENT
     Dosage: SEE IMAGE
     Route: 058
     Dates: start: 20060123
  3. HUMALOG [Concomitant]
  4. ACTOS /USA/ [Concomitant]
  5. METFORMIN [Concomitant]

REACTIONS (4)
  - BLOOD GLUCOSE FLUCTUATION [None]
  - DECREASED APPETITE [None]
  - DIARRHOEA [None]
  - NAUSEA [None]
